FAERS Safety Report 12234614 (Version 3)
Quarter: 2016Q3

REPORT INFORMATION
  Report Type: Report from Study
  Country: CL (occurrence: CL)
  Receive Date: 20160404
  Receipt Date: 20160912
  Transmission Date: 20161109
  Serious: Yes (Life-Threatening, Hospitalization)
  Sender: FDA-Public Use
  Company Number: CL-ABBVIE-16P-034-1554434-00

PATIENT
  Age: 12 Year
  Sex: Male

DRUGS (4)
  1. PREDNISONE. [Concomitant]
     Active Substance: PREDNISONE
     Indication: PRODUCT USED FOR UNKNOWN INDICATION
  2. HUMIRA [Suspect]
     Active Substance: ADALIMUMAB
     Indication: CROHN^S DISEASE
     Route: 058
     Dates: start: 20141218
  3. HUMIRA [Suspect]
     Active Substance: ADALIMUMAB
     Route: 058
     Dates: start: 20160129, end: 20160205
  4. METHOTREXATE. [Concomitant]
     Active Substance: METHOTREXATE
     Indication: PRODUCT USED FOR UNKNOWN INDICATION

REACTIONS (10)
  - Weight decreased [Recovered/Resolved]
  - Asthenia [Recovered/Resolved]
  - Sepsis [Unknown]
  - Drug ineffective [Not Recovered/Not Resolved]
  - Haematochezia [Recovered/Resolved]
  - Pyrexia [Recovered/Resolved]
  - Procedural intestinal perforation [Recovering/Resolving]
  - Infection [Unknown]
  - Thrombosis [Recovering/Resolving]
  - Ultrasound abdomen abnormal [Unknown]

NARRATIVE: CASE EVENT DATE: 2014
